FAERS Safety Report 15299294 (Version 2)
Quarter: 2018Q4

REPORT INFORMATION
  Report Type: Spontaneous
  Country: IT (occurrence: IT)
  Receive Date: 20180821
  Receipt Date: 20181024
  Transmission Date: 20190204
  Serious: Yes (Hospitalization)
  Sender: FDA-Public Use
  Company Number: IT-SUN PHARMACEUTICAL INDUSTRIES LTD-2018RR-182013

PATIENT
  Age: 84 Year
  Sex: Male

DRUGS (1)
  1. METFORMIN [Suspect]
     Active Substance: METFORMIN HYDROCHLORIDE
     Indication: DIABETES MELLITUS
     Dosage: 3 G, DAILY
     Route: 048

REACTIONS (3)
  - Depressed level of consciousness [Recovering/Resolving]
  - Malaise [Recovering/Resolving]
  - Drug level increased [Recovering/Resolving]
